FAERS Safety Report 10539723 (Version 1)
Quarter: 2014Q4

REPORT INFORMATION
  Report Type: Spontaneous
  Country: DE (occurrence: DE)
  Receive Date: 20141024
  Receipt Date: 20141024
  Transmission Date: 20150529
  Serious: Yes (Other)
  Sender: FDA-Public Use
  Company Number: GXKR2014DE003909

PATIENT

DRUGS (4)
  1. TOPIRAMATE. [Suspect]
     Active Substance: TOPIRAMATE
     Indication: ANXIETY DISORDER
     Dosage: 50 [MG/D ], 0.-37.5 GW
     Route: 064
     Dates: start: 20130324, end: 20131213
  2. ASPIRIN. [Concomitant]
     Active Substance: ASPIRIN
     Indication: PROPHYLAXIS OF ABORTION
     Route: 064
  3. VENLAFAXINE [Suspect]
     Active Substance: VENLAFAXINE HYDROCHLORIDE
     Indication: ANXIETY DISORDER
     Dosage: 150 [MG/D ], 0.-37.5 GW
     Route: 064
     Dates: start: 20130324, end: 20131213
  4. L-THYROXINE//LEVOTHYROXINE [Concomitant]
     Indication: HYPOTHYROIDISM
     Dosage: 75 [?G/D ]
     Route: 064
     Dates: start: 20130324, end: 20131213

REACTIONS (9)
  - Seizure [Unknown]
  - Atrial septal defect [Unknown]
  - Neonatal respiratory distress syndrome [Recovered/Resolved]
  - Neonatal hypotension [Recovered/Resolved]
  - Feeding disorder neonatal [Recovering/Resolving]
  - Small for dates baby [Recovering/Resolving]
  - Hypoglycaemia neonatal [Recovered/Resolved]
  - Thrombocytopenia neonatal [Recovered/Resolved]
  - Coagulation disorder neonatal [Recovered/Resolved]

NARRATIVE: CASE EVENT DATE: 20131213
